FAERS Safety Report 20207505 (Version 1)
Quarter: 2021Q4

REPORT INFORMATION
  Report Type: Spontaneous
  Country: BR (occurrence: BR)
  Receive Date: 20211220
  Receipt Date: 20211220
  Transmission Date: 20220303
  Serious: Yes (Other)
  Sender: FDA-Public Use
  Company Number: BR-BAYER-2021A270258

PATIENT
  Age: 46 Year
  Sex: Female

DRUGS (3)
  1. VITRAKVI [Suspect]
     Active Substance: LAROTRECTINIB
     Indication: Papillary thyroid cancer
     Dosage: 100 MG, BID
     Dates: start: 20191022, end: 20210318
  2. VITRAKVI [Suspect]
     Active Substance: LAROTRECTINIB
     Indication: Metastases to lymph nodes
     Dosage: 200MG ALTERNATED WITH 100M
  3. VITRAKVI [Suspect]
     Active Substance: LAROTRECTINIB
     Indication: Metastases to lung
     Dosage: 200MG ALTERNATED WITH 100MG
     Dates: start: 20210917

REACTIONS (1)
  - Neuralgia [Recovered/Resolved]

NARRATIVE: CASE EVENT DATE: 20210318
